FAERS Safety Report 18419007 (Version 1)
Quarter: 2020Q4

REPORT INFORMATION
  Report Type: Spontaneous
  Country: US (occurrence: US)
  Receive Date: 20201022
  Receipt Date: 20201022
  Transmission Date: 20210114
  Serious: Yes (Life-Threatening)
  Sender: FDA-Public Use
  Company Number: None

PATIENT
  Age: 21 Year
  Sex: Female
  Weight: 81 kg

DRUGS (5)
  1. XOPENEX INHALER [Concomitant]
  2. VITAMIN C [Concomitant]
     Active Substance: ASCORBIC ACID
  3. WOMEN^S MULTIVITAMIN [Concomitant]
  4. VITAMIN B [Concomitant]
     Active Substance: VITAMIN B
  5. MONTELUKAST [Suspect]
     Active Substance: MONTELUKAST SODIUM
     Indication: ASTHMA
     Route: 048

REACTIONS (6)
  - Nightmare [None]
  - Emotional disorder [None]
  - Obsessive-compulsive disorder [None]
  - Depression [None]
  - Anxiety [None]
  - Sleep disorder [None]
